FAERS Safety Report 8395248-8 (Version None)
Quarter: 2012Q1

REPORT INFORMATION
  Report Type: 
  Country: None (occurrence: None)
  Receive Date: 20120323
  Receipt Date: 20110411
  Transmission Date: 20120608
  Serious: Yes (Hospitalization)
  Sender: FDA-Public Use
  Company Number: 163-21880-11031895

PATIENT
  Age: 67 Year
  Sex: Male

DRUGS (4)
  1. ASPIRIN [Concomitant]
  2. VELCADE [Concomitant]
  3. DECADRON [Concomitant]
  4. REVLIMID [Suspect]
     Indication: MULTIPLE MYELOMA
     Dosage: 15 MG, DAILY D1-14/Q 21D, PO
     Route: 048
     Dates: start: 20101203

REACTIONS (1)
  - DEEP VEIN THROMBOSIS [None]
